FAERS Safety Report 5734776-8 (Version None)
Quarter: 2008Q2

REPORT INFORMATION
  Report Type: 
  Country: None (occurrence: None)
  Receive Date: 20080512
  Receipt Date: 20080502
  Transmission Date: 20081010
  Serious: Yes (Other)
  Sender: FDA-Public Use
  Company Number: PHRM2008FR01468

PATIENT

DRUGS (3)
  1. LEVOTHYROXINE SODIUM [Concomitant]
  2. ASPIRIN [Concomitant]
  3. ZOMETA [Suspect]
     Indication: BREAST CANCER METASTATIC
     Dosage: 4 MG, QMO
     Route: 042
     Dates: start: 20071229

REACTIONS (4)
  - CARBOHYDRATE ANTIGEN 15-3 INCREASED [None]
  - COUGH [None]
  - DYSPNOEA [None]
  - PERICARDITIS [None]
